FAERS Safety Report 9509732 (Version 2)
Quarter: 2013Q3

REPORT INFORMATION
  Report Type: Spontaneous
  Country: US (occurrence: US)
  Receive Date: 20130909
  Receipt Date: 20130909
  Transmission Date: 20140515
  Serious: No
  Sender: FDA-Public Use
  Company Number: US-BRISTOL-MYERS SQUIBB COMPANY-18889162

PATIENT
  Age: 50 Year
  Sex: Female
  Weight: 61.68 kg

DRUGS (7)
  1. ABILIFY [Suspect]
     Indication: BIPOLAR DISORDER
     Dosage: INCREASED TO 5MG
     Dates: start: 201212
  2. ABILIFY [Suspect]
     Indication: SCHIZOPHRENIA
     Dosage: INCREASED TO 5MG
     Dates: start: 201212
  3. KEPPRA [Concomitant]
  4. REQUIP [Concomitant]
  5. ALPRAZOLAM [Concomitant]
  6. NORCO [Concomitant]
  7. OMEPRAZOLE [Concomitant]

REACTIONS (1)
  - Depression [Unknown]
